FAERS Safety Report 9383093 (Version 1)
Quarter: 2013Q3

REPORT INFORMATION
  Report Type: Report from Study
  Country: BR (occurrence: BR)
  Receive Date: 20130704
  Receipt Date: 20130704
  Transmission Date: 20140515
  Serious: Yes (Other)
  Sender: FDA-Public Use
  Company Number: BR-ROCHE-1241585

PATIENT
  Age: 65 Year
  Sex: Female

DRUGS (1)
  1. XOLAIR [Suspect]
     Indication: ASTHMA
     Route: 065
     Dates: start: 2007

REACTIONS (6)
  - Osteoarthritis [Recovering/Resolving]
  - Asthmatic crisis [Unknown]
  - Malaise [Unknown]
  - Gait disturbance [Unknown]
  - Cough [Unknown]
  - Mycotic allergy [Unknown]
